FAERS Safety Report 17565108 (Version 1)
Quarter: 2020Q1

REPORT INFORMATION
  Report Type: Spontaneous
  Country: US (occurrence: US)
  Receive Date: 20200313
  Receipt Date: 20200313
  Transmission Date: 20200409
  Serious: Yes (Hospitalization, Other)
  Sender: FDA-Public Use
  Company Number: None

PATIENT
  Sex: Male

DRUGS (12)
  1. SPRYCEL [Suspect]
     Active Substance: DASATINIB
     Indication: PHILADELPHIA CHROMOSOME POSITIVE
     Route: 048
     Dates: start: 20191023
  2. FUROSEMIDE. [Concomitant]
     Active Substance: FUROSEMIDE
  3. POT CL MICRO [Concomitant]
  4. SPRYCEL [Suspect]
     Active Substance: DASATINIB
     Indication: CHRONIC MYELOID LEUKAEMIA
     Route: 048
     Dates: start: 20191023
  5. ELIQUIS [Concomitant]
     Active Substance: APIXABAN
  6. ATORVASTATIN [Concomitant]
     Active Substance: ATORVASTATIN
  7. SPRYCEL [Suspect]
     Active Substance: DASATINIB
     Indication: REMISSION NOT ACHIEVED
     Route: 048
     Dates: start: 20191023
  8. FINASTERIDE. [Concomitant]
     Active Substance: FINASTERIDE
  9. VERAPAMIL [Concomitant]
     Active Substance: VERAPAMIL HYDROCHLORIDE
  10. TAMSULOSIN [Concomitant]
     Active Substance: TAMSULOSIN
  11. TRIAMCINOLONE CREAM [Concomitant]
     Active Substance: TRIAMCINOLONE
  12. LOSARTAN. [Concomitant]
     Active Substance: LOSARTAN

REACTIONS (1)
  - Aspiration pleural cavity [None]
